FAERS Safety Report 6504042-1 (Version None)
Quarter: 2009Q4

REPORT INFORMATION
  Report Type: 
  Country: None (occurrence: None)
  Receive Date: 20091216
  Receipt Date: 20091216
  Transmission Date: 20100525
  Serious: Yes (Hospitalization)
  Sender: FDA-Public Use
  Company Number: None

PATIENT
  Age: 79 Year
  Sex: Male
  Weight: 103.8737 kg

DRUGS (2)
  1. CETUXIMAB 250 MG/M2 [Suspect]
     Dosage: 5225 MG IV
     Route: 042
  2. PACLITAXEL [Suspect]
     Dosage: 147 MG IV
     Route: 042

REACTIONS (3)
  - NAUSEA [None]
  - PNEUMONIA [None]
  - VOMITING [None]
